FAERS Safety Report 7339511-8 (Version None)
Quarter: 2011Q1

REPORT INFORMATION
  Report Type: 
  Country: None (occurrence: None)
  Receive Date: 20110308
  Receipt Date: 20110203
  Transmission Date: 20110831
  Serious: No
  Sender: FDA-Public Use
  Company Number: US-AMGEN-USASP2011003106

PATIENT
  Age: 75 Year
  Sex: Female

DRUGS (5)
  1. PROLIA [Suspect]
     Dosage: 60 MG, Q6MO
     Dates: start: 20110101
  2. CADUET [Concomitant]
  3. OSCAL                              /00108001/ [Concomitant]
  4. INSULIN [Concomitant]
  5. ASA [Concomitant]

REACTIONS (2)
  - BLOOD GLUCOSE INCREASED [None]
  - DYSPEPSIA [None]
